FAERS Safety Report 5598464-3 (Version None)
Quarter: 2008Q1

REPORT INFORMATION
  Report Type: 
  Country: None (occurrence: None)
  Receive Date: 20080122
  Receipt Date: 20080114
  Transmission Date: 20080703
  Serious: Yes (Other)
  Sender: FDA-Public Use
  Company Number: US-JNJFOC-20080103532

PATIENT
  Sex: Female
  Weight: 99.79 kg

DRUGS (3)
  1. TOPAMAX [Suspect]
     Indication: PAIN MANAGEMENT
     Route: 048
  2. CYMBALTA [Concomitant]
     Indication: DEPRESSION
     Route: 048
  3. OXYCONTIN [Concomitant]
     Indication: PAIN
     Route: 048

REACTIONS (5)
  - DEAFNESS NEUROSENSORY [None]
  - HEADACHE [None]
  - HYPERTENSION [None]
  - TINNITUS [None]
  - WEIGHT DECREASED [None]
